FAERS Safety Report 9838594 (Version 2)
Quarter: 2014Q1

REPORT INFORMATION
  Report Type: Spontaneous
  Country: IT (occurrence: IT)
  Receive Date: 20140123
  Receipt Date: 20140127
  Transmission Date: 20141002
  Serious: Yes (Other)
  Sender: FDA-Public Use
  Company Number: IT-PFIZER INC-2014021020

PATIENT
  Age: 37 Year
  Sex: Female

DRUGS (4)
  1. EFEXOR ER [Suspect]
     Dosage: 1 DF, TOTAL DOSAGE
     Route: 048
     Dates: start: 20131005, end: 20131005
  2. LARGACTIL [Suspect]
     Dosage: 5 DF, TOTAL DOSAGE
     Route: 048
     Dates: start: 20131005, end: 20131005
  3. ABILIFY [Suspect]
     Dosage: 2 DF, TOTAL DOSAGE
     Route: 048
     Dates: start: 20131005, end: 20131005
  4. DEPAKIN [Suspect]
     Dosage: 3 DF, TOTAL DOSAGE
     Route: 048
     Dates: start: 20131005, end: 20131005

REACTIONS (4)
  - Drug abuse [Recovering/Resolving]
  - Toxicity to various agents [Recovering/Resolving]
  - Abdominal pain upper [Recovering/Resolving]
  - Agitation [Recovering/Resolving]
